FAERS Safety Report 19250379 (Version 1)
Quarter: 2021Q2

REPORT INFORMATION
  Report Type: Spontaneous
  Country: FI (occurrence: FI)
  Receive Date: 20210512
  Receipt Date: 20210512
  Transmission Date: 20210717
  Serious: Yes (Disabling)
  Sender: FDA-Public Use
  Company Number: FI-AMGEN-FINSP2021071005

PATIENT
  Age: 57 Year
  Sex: Female

DRUGS (3)
  1. PROLIA [Suspect]
     Active Substance: DENOSUMAB
     Indication: OSTEOPOROSIS
     Dosage: 60 MILLIGRAM,X3
     Route: 058
     Dates: start: 20200125
  2. SEPRAM [Concomitant]
     Active Substance: CITALOPRAM HYDROBROMIDE
     Indication: DEPRESSION
     Dosage: 30 MILLIGRAM, QD
     Dates: start: 2002
  3. ASACOL [Concomitant]
     Active Substance: MESALAMINE
     Indication: COLITIS ULCERATIVE
     Dosage: 1600 MILLIGRAM, QD
     Route: 065
     Dates: start: 1995

REACTIONS (10)
  - Constipation [Recovered/Resolved with Sequelae]
  - Alopecia [Recovered/Resolved with Sequelae]
  - Back pain [Recovered/Resolved with Sequelae]
  - Arthralgia [Recovered/Resolved with Sequelae]
  - Chondritis [Recovered/Resolved with Sequelae]
  - Myalgia [Recovered/Resolved with Sequelae]
  - Bone pain [Recovered/Resolved with Sequelae]
  - Rash macular [Recovered/Resolved with Sequelae]
  - Physical disability [Recovered/Resolved with Sequelae]
  - Gait disturbance [Recovered/Resolved with Sequelae]

NARRATIVE: CASE EVENT DATE: 20200730
